FAERS Safety Report 8117376-4 (Version None)
Quarter: 2012Q1

REPORT INFORMATION
  Report Type: 
  Country: None (occurrence: None)
  Receive Date: 20120206
  Receipt Date: 20120127
  Transmission Date: 20120608
  Serious: Yes (Other)
  Sender: FDA-Public Use
  Company Number: SV-ASTRAZENECA-2012SE06382

PATIENT
  Age: 27 Year
  Sex: Female
  Weight: 68.5 kg

DRUGS (5)
  1. BROMAZEPAM [Concomitant]
     Indication: SCHIZOPHRENIA
     Route: 048
     Dates: start: 20050101
  2. SEROQUEL [Suspect]
     Route: 048
     Dates: end: 20111101
  3. DOSTINEX [Concomitant]
  4. SEROQUEL [Suspect]
     Indication: SCHIZOPHRENIA
     Route: 048
     Dates: start: 20050101
  5. CYMBALTA [Concomitant]

REACTIONS (15)
  - SELF ESTEEM DECREASED [None]
  - LOSS OF CONSCIOUSNESS [None]
  - FALL [None]
  - GALACTORRHOEA [None]
  - DRUG DOSE OMISSION [None]
  - HYPERREFLEXIA [None]
  - DYSLIPIDAEMIA [None]
  - HEADACHE [None]
  - AMENORRHOEA [None]
  - ELECTROENCEPHALOGRAM ABNORMAL [None]
  - PANIC ATTACK [None]
  - MATERNAL EXPOSURE DURING PREGNANCY [None]
  - ABORTION SPONTANEOUS [None]
  - INTRACRANIAL HAEMATOMA [None]
  - HYPERPROLACTINAEMIA [None]
